FAERS Safety Report 9443330 (Version 1)
Quarter: 2013Q3

REPORT INFORMATION
  Report Type: Spontaneous
  Country: US (occurrence: None)
  Receive Date: 20130802
  Receipt Date: 20130802
  Transmission Date: 20140515
  Serious: Yes (Other)
  Sender: FDA-Public Use
  Company Number: 2013P1013471

PATIENT
  Age: 67 Year
  Sex: Male

DRUGS (6)
  1. RISPERIDONE [Suspect]
     Indication: AGGRESSION
     Dosage: 0.5 MG, X2, PO
     Route: 048
  2. QUETIAPINE [Suspect]
  3. TRAZODONE [Concomitant]
  4. MELATONIN [Concomitant]
  5. SIMVASTATIN [Concomitant]
  6. TEMAZEPAM [Concomitant]

REACTIONS (1)
  - Pleurothotonus [None]
